FAERS Safety Report 13526722 (Version 1)
Quarter: 2017Q2

REPORT INFORMATION
  Report Type: Spontaneous
  Country: DE (occurrence: DE)
  Receive Date: 20170509
  Receipt Date: 20170509
  Transmission Date: 20170830
  Serious: Yes (Hospitalization, Other)
  Sender: FDA-Public Use
  Company Number: DE-GLENMARK PHARMACEUTICALS-2017GMK027382

PATIENT
  Age: 8 Day
  Sex: Female

DRUGS (2)
  1. LIDOCAINE. [Suspect]
     Active Substance: LIDOCAINE
     Dosage: 4 MG/KG, 1 HOUR CONTINUOUS INFUSION
     Route: 042
  2. LIDOCAINE. [Suspect]
     Active Substance: LIDOCAINE
     Indication: CONVULSION NEONATAL
     Dosage: 6 MG/KG, UNK
     Route: 042

REACTIONS (1)
  - Methaemoglobinaemia [Recovering/Resolving]
